FAERS Safety Report 6476673-9 (Version None)
Quarter: 2009Q4

REPORT INFORMATION
  Report Type: 
  Country: None (occurrence: None)
  Receive Date: 20091207
  Receipt Date: 20091127
  Transmission Date: 20100525
  Serious: Yes (Hospitalization)
  Sender: FDA-Public Use
  Company Number: FR-EISAI INC.-E3810-03339-SPO-FR

PATIENT
  Sex: Female

DRUGS (8)
  1. PARIET (RABEPRAZOLE) [Suspect]
     Route: 048
     Dates: end: 20090705
  2. CODEINE [Suspect]
     Route: 048
     Dates: end: 20090705
  3. ROWASA [Concomitant]
  4. CIRKAN [Concomitant]
  5. VASTAREL [Concomitant]
  6. LORAZEPAM [Concomitant]
     Route: 048
  7. COLPOTROPHINE [Concomitant]
  8. RIVOTRIL [Concomitant]

REACTIONS (3)
  - CONFUSIONAL STATE [None]
  - HYPONATRAEMIA [None]
  - OVERDOSE [None]
